FAERS Safety Report 17272974 (Version 1)
Quarter: 2020Q1

REPORT INFORMATION
  Report Type: Spontaneous
  Country: US (occurrence: US)
  Receive Date: 20200115
  Receipt Date: 20200115
  Transmission Date: 20200409
  Serious: No
  Sender: FDA-Public Use
  Company Number: None

PATIENT
  Sex: Male
  Weight: 95.4 kg

DRUGS (1)
  1. RIZATRIPTAN ODT 10 MG TAB CIT GENERIC FOR}MAXALT-MLT 10MG TAB [Suspect]
     Active Substance: RIZATRIPTAN BENZOATE
     Indication: MIGRAINE
     Dosage: ?          QUANTITY:1 TABLET(S);OTHER FREQUENCY:ONE TABLET AT ONSE;?
     Route: 048
     Dates: start: 20181128, end: 20200115

REACTIONS (6)
  - Malaise [None]
  - Muscle tightness [None]
  - Discomfort [None]
  - Product solubility abnormal [None]
  - Product substitution issue [None]
  - Product packaging issue [None]
